FAERS Safety Report 24008364 (Version 5)
Quarter: 2024Q3

REPORT INFORMATION
  Report Type: Report from Study
  Country: MX (occurrence: MX)
  Receive Date: 20240625
  Receipt Date: 20240824
  Transmission Date: 20241016
  Serious: Yes (Other)
  Sender: TAKEDA
  Company Number: MX-TAKEDA-2023TUS124322

PATIENT
  Age: 34 Year
  Sex: Female

DRUGS (15)
  1. ICATIBANT [Suspect]
     Active Substance: ICATIBANT ACETATE
     Indication: Hereditary angioedema
     Dosage: UNK
     Route: 058
     Dates: start: 20231215
  2. ICATIBANT [Suspect]
     Active Substance: ICATIBANT ACETATE
     Indication: Hereditary angioedema
     Dosage: UNK
     Route: 058
     Dates: start: 20231215
  3. ICATIBANT [Suspect]
     Active Substance: ICATIBANT ACETATE
     Dosage: UNK
     Route: 058
  4. ICATIBANT [Suspect]
     Active Substance: ICATIBANT ACETATE
     Dosage: UNK
     Route: 058
  5. ICATIBANT [Suspect]
     Active Substance: ICATIBANT ACETATE
     Dosage: 15 MILLIGRAM
     Route: 058
  6. ICATIBANT [Suspect]
     Active Substance: ICATIBANT ACETATE
     Dosage: 15 MILLIGRAM
     Route: 058
  7. ICATIBANT [Suspect]
     Active Substance: ICATIBANT ACETATE
     Dosage: UNK
     Route: 058
  8. ICATIBANT [Suspect]
     Active Substance: ICATIBANT ACETATE
     Dosage: UNK
     Route: 058
  9. ICATIBANT [Suspect]
     Active Substance: ICATIBANT ACETATE
     Dosage: UNK
     Route: 058
     Dates: start: 20231225
  10. ICATIBANT [Suspect]
     Active Substance: ICATIBANT ACETATE
     Dosage: UNK
     Route: 058
     Dates: start: 20231225
  11. ICATIBANT [Suspect]
     Active Substance: ICATIBANT ACETATE
     Dosage: UNK
     Route: 058
  12. ICATIBANT [Suspect]
     Active Substance: ICATIBANT ACETATE
     Dosage: UNK
     Route: 058
  13. INSULIN GLARGINE [Concomitant]
     Active Substance: INSULIN GLARGINE
     Indication: Diabetes mellitus
     Dosage: 30 INTERNATIONAL UNIT, QD
     Route: 065
     Dates: start: 2016
  14. ENOXAPARIN [Concomitant]
     Active Substance: ENOXAPARIN
     Indication: Hereditary angioedema
     Dosage: UNK
     Route: 065
  15. ALBUTEROL [Concomitant]
     Active Substance: ALBUTEROL
     Indication: Rhinitis
     Dosage: UNK
     Route: 065

REACTIONS (32)
  - Diabetes mellitus [Unknown]
  - Colitis [Unknown]
  - Fear of injection [Not Recovered/Not Resolved]
  - Pruritus [Not Recovered/Not Resolved]
  - Feeling abnormal [Unknown]
  - Abdominal discomfort [Recovered/Resolved]
  - Job dissatisfaction [Unknown]
  - Therapeutic product effect delayed [Unknown]
  - Stress at work [Unknown]
  - Discomfort [Recovered/Resolved]
  - Malaise [Unknown]
  - Underdose [Unknown]
  - Phlebitis [Recovered/Resolved]
  - Impatience [Unknown]
  - Product use issue [Unknown]
  - Abdominal pain [Recovered/Resolved]
  - Pharyngeal disorder [Not Recovered/Not Resolved]
  - Pharyngitis [Unknown]
  - Stress [Unknown]
  - Anxiety [Unknown]
  - Bone pain [Unknown]
  - Body temperature abnormal [Unknown]
  - Cough [Unknown]
  - Abdominal pain upper [Unknown]
  - Throat irritation [Unknown]
  - Rhinitis [Unknown]
  - Gastrointestinal disorder [Unknown]
  - Dysmenorrhoea [Recovered/Resolved]
  - Multiple allergies [Unknown]
  - Diarrhoea [Recovered/Resolved]
  - Chest pain [Unknown]
  - Headache [Recovered/Resolved]

NARRATIVE: CASE EVENT DATE: 20231215
